FAERS Safety Report 18683980 (Version 1)
Quarter: 2020Q4

REPORT INFORMATION
  Report Type: Spontaneous
  Country: US (occurrence: US)
  Receive Date: 20201230
  Receipt Date: 20201230
  Transmission Date: 20210114
  Serious: Yes (Other)
  Sender: FDA-Public Use
  Company Number: US-DEXPHARM-20201181

PATIENT
  Age: 48 Year
  Sex: Male
  Weight: 145.13 kg

DRUGS (5)
  1. ALCOHOL. [Suspect]
     Active Substance: ALCOHOL
     Indication: ALCOHOL USE
     Dosage: 5 SHOTS WHISKEY, PRN;  5 SHOTS WHISKEY, DAILY
     Route: 048
     Dates: end: 20201128
  2. METOPROLOL TARTRATE. [Concomitant]
     Active Substance: METOPROLOL TARTRATE
     Indication: HYPERTENSION
     Dosage: UNK
     Route: 065
  3. OMEPRAZOLE DELAYED RELEASE TABLETS 20 MG [Interacting]
     Active Substance: OMEPRAZOLE
     Indication: GASTROOESOPHAGEAL REFLUX DISEASE
     Dosage: 40 MG, QD
     Route: 048
     Dates: start: 2019, end: 202012
  4. OMEPRAZOLE DELAYED RELEASE TABLETS 20 MG [Interacting]
     Active Substance: OMEPRAZOLE
     Indication: DYSPEPSIA
     Dosage: 40 MG, QD
     Route: 048
     Dates: start: 2019, end: 202012
  5. LOPERAMIDE [Interacting]
     Active Substance: LOPERAMIDE
     Indication: IRRITABLE BOWEL SYNDROME
     Dosage: 2 TABLETS, UP TO 5 TIMES DAILY
     Route: 048
     Dates: end: 202012

REACTIONS (3)
  - Drug interaction [Recovered/Resolved]
  - Amnesia [Recovered/Resolved]
  - Delusion [Recovered/Resolved]
